FAERS Safety Report 17912234 (Version 1)
Quarter: 2020Q2

REPORT INFORMATION
  Report Type: Spontaneous
  Country: JP (occurrence: JP)
  Receive Date: 20200618
  Receipt Date: 20200618
  Transmission Date: 20200714
  Serious: Yes (Hospitalization)
  Sender: FDA-Public Use
  Company Number: JP-SA-2020SA147974

PATIENT

DRUGS (6)
  1. FEBURIC [Concomitant]
     Active Substance: FEBUXOSTAT
  2. FOSRENOL [Concomitant]
     Active Substance: LANTHANUM CARBONATE
  3. LASIX [Concomitant]
     Active Substance: FUROSEMIDE
     Route: 048
  4. ROCALTROL [Concomitant]
     Active Substance: CALCITRIOL
  5. PARIET [Concomitant]
     Active Substance: RABEPRAZOLE SODIUM
  6. PHOSBLOCK [Suspect]
     Active Substance: FERRIC HYDROXIDE
     Indication: PRODUCT USED FOR UNKNOWN INDICATION
     Dosage: UNK
     Route: 048
     Dates: start: 20200527

REACTIONS (1)
  - Myocardial infarction [Unknown]

NARRATIVE: CASE EVENT DATE: 20200528
